FAERS Safety Report 10129090 (Version 2)
Quarter: 2014Q2

REPORT INFORMATION
  Report Type: Report from Study
  Country: BR (occurrence: BR)
  Receive Date: 20140428
  Receipt Date: 20140505
  Transmission Date: 20141212
  Serious: Yes (Other)
  Sender: FDA-Public Use
  Company Number: BR-ELI_LILLY_AND_COMPANY-BR201404004786

PATIENT
  Age: 13 Year
  Sex: Male
  Weight: 61 kg

DRUGS (7)
  1. LISPRO NPL KWIKPEN / MIRIOPEN [Suspect]
     Indication: BLOOD GLUCOSE ABNORMAL
     Dosage: UNK, OTHER
     Route: 058
  2. LISPRO NPL KWIKPEN / MIRIOPEN [Suspect]
     Dosage: UNK, OTHER
     Route: 058
  3. LISPRO NPL KWIKPEN / MIRIOPEN [Suspect]
     Dosage: UNK, OTHER
     Route: 058
  4. NOVOLIN [Concomitant]
     Indication: PRODUCT USED FOR UNKNOWN INDICATION
     Dosage: 5 IU, UNKNOWN
     Route: 065
  5. NOVOLIN [Concomitant]
     Dosage: 10 IU, UNKNOWN
     Route: 065
  6. NOVOLIN [Concomitant]
     Dosage: 8 IU, UNKNOWN
     Route: 065
  7. NOVOLIN [Concomitant]
     Dosage: 18 IU, EACH MORNING
     Route: 065

REACTIONS (5)
  - Hyperglycaemia [Not Recovered/Not Resolved]
  - Underdose [Not Recovered/Not Resolved]
  - Pharyngitis [Not Recovered/Not Resolved]
  - Hypoglycaemia [Unknown]
  - Drug ineffective [Not Recovered/Not Resolved]
